FAERS Safety Report 21305971 (Version 1)
Quarter: 2022Q3

REPORT INFORMATION
  Report Type: Spontaneous
  Country: IN (occurrence: IN)
  Receive Date: 20220908
  Receipt Date: 20220908
  Transmission Date: 20221027
  Serious: Yes (Hospitalization, Other)
  Sender: FDA-Public Use
  Company Number: IN-Accord-276935

PATIENT
  Age: 47 Year
  Sex: Female

DRUGS (1)
  1. METHOTREXATE [Suspect]
     Active Substance: METHOTREXATE
     Indication: Psoriasis
     Dosage: PATIENT WAS ON 15 MG/WEEK MTX THERAPY AND ACCIDENTALLY CONSUMED 15 MG FOR 7 CONSECUTIVE DAYS

REACTIONS (3)
  - Squamous cell carcinoma [Recovered/Resolved]
  - Toxicity to various agents [Unknown]
  - Medication error [Unknown]
